FAERS Safety Report 13545929 (Version 1)
Quarter: 2017Q2

REPORT INFORMATION
  Report Type: Spontaneous
  Country: TR (occurrence: TR)
  Receive Date: 20170515
  Receipt Date: 20170515
  Transmission Date: 20170830
  Serious: Yes (Other)
  Sender: FDA-Public Use
  Company Number: TR-TEVA-767936ISR

PATIENT
  Age: 20 Year
  Sex: Female
  Weight: 58 kg

DRUGS (1)
  1. TETRADOX [Suspect]
     Active Substance: DOXYCYCLINE HYDROCHLORIDE
     Indication: ACNE
     Dosage: TETRADOX 100 MG CAPSULE
     Route: 048
     Dates: start: 20170407, end: 20170417

REACTIONS (2)
  - Oesophageal pain [Not Recovered/Not Resolved]
  - Oesophageal compression [Not Recovered/Not Resolved]

NARRATIVE: CASE EVENT DATE: 20170417
